FAERS Safety Report 10203564 (Version 1)
Quarter: 2014Q2

REPORT INFORMATION
  Report Type: Spontaneous
  Country: CH (occurrence: None)
  Receive Date: 20140523
  Receipt Date: 20140523
  Transmission Date: 20141212
  Serious: Yes (Life-Threatening)
  Sender: FDA-Public Use
  Company Number: FK201401853

PATIENT
  Age: 32 Year
  Sex: Female

DRUGS (1)
  1. PROPOFOL [Suspect]
     Indication: PRODUCT USED FOR UNKNOWN INDICATION
     Dates: start: 20140430, end: 20140430

REACTIONS (5)
  - Apnoea [None]
  - Pharyngeal erythema [None]
  - Wrong drug administered [None]
  - Accidental overdose [None]
  - Post procedural complication [None]
